FAERS Safety Report 16265833 (Version 2)
Quarter: 2019Q2

REPORT INFORMATION
  Report Type: Spontaneous
  Country: SE (occurrence: SE)
  Receive Date: 20190502
  Receipt Date: 20190505
  Transmission Date: 20190711
  Serious: Yes (Hospitalization)
  Sender: FDA-Public Use
  Company Number: SE-TEVA-2019-SE-1044104

PATIENT
  Sex: Male

DRUGS (6)
  1. SEROQUEL [Suspect]
     Active Substance: QUETIAPINE FUMARATE
     Dosage: ^2^
     Route: 048
     Dates: start: 20141026, end: 20141026
  2. PROPAVAN [Suspect]
     Active Substance: PROPIOMAZINE
     Route: 065
  3. THERALEN [Suspect]
     Active Substance: TRIMEPRAZINE
     Dosage: 100 MILLIGRAM 20 ST
     Route: 048
     Dates: start: 20141026, end: 20141026
  4. ZOLOFT [Suspect]
     Active Substance: SERTRALINE HYDROCHLORIDE
     Dosage: ^2^
     Route: 048
     Dates: start: 20141026, end: 20141026
  5. POSTAFEN (MECLOZINE HYDROCHLORIDE) [Suspect]
     Active Substance: MECLIZINE MONOHYDROCHLORIDE
     Dosage: ^1 PACK ^
     Route: 048
     Dates: start: 20141026, end: 20141026
  6. DIMOR [Suspect]
     Active Substance: LOPERAMIDE
     Dosage: 700 MILLIGRAM 350 ST
     Route: 048
     Dates: start: 20141026, end: 20141026

REACTIONS (9)
  - Irregular breathing [Unknown]
  - Electrocardiogram QRS complex prolonged [Unknown]
  - Depressed level of consciousness [Recovering/Resolving]
  - Consciousness fluctuating [Recovering/Resolving]
  - Intentional overdose [Unknown]
  - Oxygen saturation decreased [Unknown]
  - Intentional self-injury [Unknown]
  - Pyrexia [Unknown]
  - Suicidal ideation [Unknown]

NARRATIVE: CASE EVENT DATE: 201410
